FAERS Safety Report 25027642 (Version 2)
Quarter: 2025Q2

REPORT INFORMATION
  Report Type: Spontaneous
  Country: US (occurrence: US)
  Receive Date: 20250301
  Receipt Date: 20250423
  Transmission Date: 20250717
  Serious: No
  Sender: SANOFI AVENTIS
  Company Number: US-SA-2025SA057130

PATIENT
  Age: 29 Year
  Sex: Male

DRUGS (1)
  1. DUPIXENT [Suspect]
     Active Substance: DUPILUMAB
     Indication: Eczema
     Dosage: 300 MG, QOW
     Route: 058
     Dates: start: 202410

REACTIONS (6)
  - Influenza [Recovered/Resolved]
  - Nasal congestion [Recovered/Resolved]
  - Myalgia [Recovered/Resolved]
  - Rebound eczema [Unknown]
  - Pruritus [Unknown]
  - Incorrect dose administered [Unknown]

NARRATIVE: CASE EVENT DATE: 20241001
